FAERS Safety Report 23079365 (Version 1)
Quarter: 2023Q4

REPORT INFORMATION
  Report Type: Spontaneous
  Country: US (occurrence: US)
  Receive Date: 20231018
  Receipt Date: 20231018
  Transmission Date: 20240110
  Serious: Yes (Hospitalization, Other)
  Sender: FDA-Public Use
  Company Number: US-APOTEX-2023AP015316

PATIENT
  Age: 76 Year
  Sex: Male

DRUGS (1)
  1. TRANEXAMIC ACID [Suspect]
     Active Substance: TRANEXAMIC ACID
     Indication: Product used for unknown indication
     Dosage: 300 MILLIGRAM
     Route: 037

REACTIONS (15)
  - Respiratory failure [Recovering/Resolving]
  - Lactic acidosis [Recovering/Resolving]
  - Toxicity to various agents [Recovering/Resolving]
  - Wrong product administered [Unknown]
  - Hypertension [Recovering/Resolving]
  - Sinus tachycardia [Recovering/Resolving]
  - Hypoxia [Recovering/Resolving]
  - Ventricular tachycardia [Recovering/Resolving]
  - Shock [Recovering/Resolving]
  - Troponin increased [Recovering/Resolving]
  - Tachycardia [Recovering/Resolving]
  - Myoclonus [Recovering/Resolving]
  - Cough [Recovering/Resolving]
  - Unresponsive to stimuli [Recovering/Resolving]
  - Ejection fraction decreased [Recovering/Resolving]
